FAERS Safety Report 9885230 (Version 6)
Quarter: 2014Q2

REPORT INFORMATION
  Report Type: Spontaneous
  Country: US (occurrence: US)
  Receive Date: 20140210
  Receipt Date: 20140402
  Transmission Date: 20141212
  Serious: No
  Sender: FDA-Public Use
  Company Number: US-PFIZER INC-2014035855

PATIENT
  Age: 66 Year
  Sex: Male
  Weight: 90.7 kg

DRUGS (3)
  1. LYRICA [Suspect]
     Indication: CEREBRAL SARCOIDOSIS
     Dosage: 225 MG, 2X/DAY
     Dates: start: 2008, end: 20140107
  2. LYRICA [Suspect]
     Indication: NEURALGIA
     Dosage: 300 MG, 2X/DAY
     Dates: start: 20140108
  3. LYRICA [Suspect]
     Indication: SARCOIDOSIS
     Dosage: UNK

REACTIONS (6)
  - Joint swelling [Unknown]
  - Rash macular [Not Recovered/Not Resolved]
  - Skin disorder [Not Recovered/Not Resolved]
  - Drug ineffective [Unknown]
  - Peripheral swelling [Unknown]
  - Vision blurred [Unknown]
